FAERS Safety Report 23285345 (Version 1)
Quarter: 2023Q4

REPORT INFORMATION
  Report Type: Spontaneous
  Country: CA (occurrence: None)
  Receive Date: 20231211
  Receipt Date: 20231211
  Transmission Date: 20240110
  Serious: Yes (Hospitalization, Other)
  Sender: FDA-Public Use
  Company Number: 2020SE05075

PATIENT
  Age: 61 Year
  Sex: Male

DRUGS (6)
  1. SYMBICORT [Suspect]
     Active Substance: BUDESONIDE\FORMOTEROL FUMARATE DIHYDRATE
     Indication: Product used for unknown indication
     Dosage: 2 DF, TWO TIMES A DAY
     Route: 055
  2. NUCALA [Suspect]
     Active Substance: MEPOLIZUMAB
     Indication: Asthma
     Dosage: 100 MG, Z, MONTHLY100.0MG UNKNOWN
     Route: 042
     Dates: start: 20180525
  3. ALBUTEROL SULFATE [Suspect]
     Active Substance: ALBUTEROL SULFATE
     Indication: Product used for unknown indication
     Dosage: UNKNOWN
     Route: 065
  4. HAEMOPHILUS INFLUENZAE TYPE B [Concomitant]
     Active Substance: HAEMOPHILUS INFLUENZAE TYPE B
     Indication: Product used for unknown indication
  5. PNEUMOVAX 23 [Concomitant]
     Active Substance: PNEUMOCOCCAL VACCINE, POLYVALENT 23
     Indication: Product used for unknown indication
  6. VARICELLA-ZOSTER VIRUS [Concomitant]
     Indication: Product used for unknown indication

REACTIONS (18)
  - Asthma [Unknown]
  - Full blood count abnormal [Unknown]
  - Blood pressure increased [Unknown]
  - Bronchopulmonary aspergillosis allergic [Unknown]
  - Chest discomfort [Recovering/Resolving]
  - Dyspnoea [Not Recovered/Not Resolved]
  - Eosinophilia [Unknown]
  - Hypertension [Unknown]
  - Loss of personal independence in daily activities [Recovering/Resolving]
  - Lung infiltration [Unknown]
  - Nasal congestion [Recovering/Resolving]
  - Pulmonary fibrosis [Unknown]
  - Reversible airways obstruction [Unknown]
  - Rhinitis [Unknown]
  - Rhinitis allergic [Unknown]
  - Upper respiratory tract congestion [Unknown]
  - Wheezing [Recovering/Resolving]
  - Hospitalisation [Unknown]
